FAERS Safety Report 7646377-5 (Version None)
Quarter: 2011Q3

REPORT INFORMATION
  Report Type: 
  Country: None (occurrence: None)
  Receive Date: 20110801
  Receipt Date: 20101201
  Transmission Date: 20111222
  Serious: No
  Sender: FDA-Public Use
  Company Number: US-BAYER-2010-008656

PATIENT
  Age: 14 Year
  Sex: Male

DRUGS (1)
  1. MIRENA [Suspect]
     Indication: CONTRACEPTION
     Dosage: 20 ?G/D, CONT
     Route: 015
     Dates: start: 20100201, end: 20101129

REACTIONS (4)
  - PENILE PAIN [None]
  - UTERINE SPASM [None]
  - DEVICE DISLOCATION [None]
  - MENORRHAGIA [None]
